FAERS Safety Report 8876466 (Version 1)
Quarter: 2012Q4

REPORT INFORMATION
  Report Type: 
  Country: US (occurrence: US)
  Receive Date: 20121023
  Receipt Date: 20121023
  Transmission Date: 20130627
  Serious: Yes (Other)
  Sender: FDA-Public Use
  Company Number: US-ASTELLAS-2012US004471

PATIENT
  Sex: Male
  Weight: 64 kg

DRUGS (3)
  1. PROGRAF [Suspect]
     Indication: HEART TRANSPLANT
     Dosage: 2 mg, bid
     Route: 048
  2. CELLCEPT [Concomitant]
     Indication: HEART TRANSPLANT
     Dosage: 1000 mg, bid
     Route: 048
     Dates: start: 200510
  3. PLATELET AGGREGATION INHIBITORS [Concomitant]
     Indication: ANTICOAGULANT THERAPY
     Dosage: 40 mg, UID/QD
     Route: 048
     Dates: start: 201203

REACTIONS (2)
  - Convulsion [Unknown]
  - Treatment noncompliance [Unknown]
